FAERS Safety Report 17620991 (Version 3)
Quarter: 2020Q2

REPORT INFORMATION
  Report Type: Spontaneous
  Country: FR (occurrence: FR)
  Receive Date: 20200403
  Receipt Date: 20200604
  Transmission Date: 20200713
  Serious: Yes (Other)
  Sender: FDA-Public Use
  Company Number: FR-PFIZER INC-2020119744

PATIENT
  Age: 70 Year
  Sex: Female
  Weight: 77 kg

DRUGS (1)
  1. IBRANCE [Suspect]
     Active Substance: PALBOCICLIB
     Dosage: 125 MG, CYCLIC (DAILY FOR 3 WEEKS OUT OF 4)
     Dates: start: 20200309

REACTIONS (7)
  - Anaemia [Unknown]
  - Haemorrhage [Recovered/Resolved]
  - Neutropenia [Unknown]
  - Cough [Unknown]
  - Dyspnoea exertional [Unknown]
  - Fatigue [Recovered/Resolved]
  - Decreased appetite [Unknown]

NARRATIVE: CASE EVENT DATE: 20200318
